FAERS Safety Report 14279913 (Version 3)
Quarter: 2018Q2

REPORT INFORMATION
  Report Type: Spontaneous
  Country: US (occurrence: US)
  Receive Date: 20171212
  Receipt Date: 20180508
  Transmission Date: 20180711
  Serious: No
  Sender: FDA-Public Use
  Company Number: US-VIFOR (INTERNATIONAL) INC.-VIT-2017-13413

PATIENT
  Sex: Female

DRUGS (22)
  1. EZETIMIBE. [Concomitant]
     Active Substance: EZETIMIBE
  2. PANTOPRAZOLE SODIUM SESQUIHYDRATE [Concomitant]
     Active Substance: PANTOPRAZOLE SODIUM
  3. ENALAPRIL MALEATE. [Concomitant]
     Active Substance: ENALAPRIL MALEATE
  4. LEVOTHYROXINE SODIUM. [Concomitant]
     Active Substance: LEVOTHYROXINE SODIUM
  5. MINOXIDIL. [Concomitant]
     Active Substance: MINOXIDIL
  6. CALCITRIOL. [Concomitant]
     Active Substance: CALCITRIOL
  7. VELTASSA [Suspect]
     Active Substance: PATIROMER
     Indication: HYPERKALAEMIA
     Route: 048
     Dates: start: 20171115
  8. SUCRALFATE. [Concomitant]
     Active Substance: SUCRALFATE
  9. ARANESP [Concomitant]
     Active Substance: DARBEPOETIN ALFA
  10. EPOGEN [Concomitant]
     Active Substance: ERYTHROPOIETIN
  11. FUROSEMIDE. [Concomitant]
     Active Substance: FUROSEMIDE
  12. GLIMEPIRIDE. [Concomitant]
     Active Substance: GLIMEPIRIDE
  13. PARACETAMOL [Concomitant]
     Active Substance: ACETAMINOPHEN
  14. ATORVASTATIN CALCIUM. [Concomitant]
     Active Substance: ATORVASTATIN CALCIUM
  15. NEPHRO-VITE RX [Concomitant]
  16. CARAFATE [Concomitant]
     Active Substance: SUCRALFATE
  17. CLONIDINE HYDROCHLORIDE. [Concomitant]
     Active Substance: CLONIDINE HYDROCHLORIDE
  18. LEVETIRACETAM. [Concomitant]
     Active Substance: LEVETIRACETAM
  19. METOCLOPRAMIDE HYDROCHLORIDE. [Concomitant]
     Active Substance: METOCLOPRAMIDE HYDROCHLORIDE
  20. AMLODIPINE BESILATE [Concomitant]
     Active Substance: AMLODIPINE BESYLATE
  21. BISACODYL. [Concomitant]
     Active Substance: BISACODYL
  22. CELEXA [Concomitant]
     Active Substance: CITALOPRAM HYDROBROMIDE

REACTIONS (3)
  - Constipation [Unknown]
  - Refusal of treatment by patient [Unknown]
  - Product physical issue [Unknown]

NARRATIVE: CASE EVENT DATE: 2017
